FAERS Safety Report 18612719 (Version 1)
Quarter: 2020Q4

REPORT INFORMATION
  Report Type: Spontaneous
  Country: US (occurrence: US)
  Receive Date: 20201214
  Receipt Date: 20201214
  Transmission Date: 20210114
  Serious: No
  Sender: FDA-Public Use
  Company Number: US-NEUROCRINE BIOSCIENCES INC.-2020NBI04464

PATIENT
  Age: 60 Year
  Sex: Male

DRUGS (1)
  1. ONGENTYS [Suspect]
     Active Substance: OPICAPONE
     Indication: PRODUCT USED FOR UNKNOWN INDICATION
     Route: 048

REACTIONS (3)
  - Anxiety [Unknown]
  - Dyskinesia [Unknown]
  - Confusional state [Unknown]
